FAERS Safety Report 7267143-9 (Version None)
Quarter: 2011Q1

REPORT INFORMATION
  Report Type: 
  Country: None (occurrence: None)
  Receive Date: 20110201
  Receipt Date: 20110118
  Transmission Date: 20110831
  Serious: Yes (Hospitalization)
  Sender: FDA-Public Use
  Company Number: TW-RANBAXY-2010RR-40818

PATIENT
  Age: 58 Year
  Sex: Female

DRUGS (8)
  1. PAROXETINE HCL [Suspect]
     Indication: MAJOR DEPRESSION
     Dosage: 10-40 MG/DAY
     Dates: start: 19990401, end: 20070401
  2. VENLAFAXINE [Suspect]
     Indication: MAJOR DEPRESSION
     Dosage: 37.5-225 MG/DAY
     Dates: start: 19990401, end: 20070401
  3. ESCITALOPRAM [Suspect]
     Indication: MAJOR DEPRESSION
     Dosage: 10 MG, UNK
     Dates: start: 19990401, end: 20070401
  4. MIRTAZAPINE [Suspect]
     Indication: MAJOR DEPRESSION
     Dosage: 15 MG, UNK
     Dates: start: 19990401, end: 20070401
  5. TRAZODONE HCL [Concomitant]
     Dosage: 100 MG, QD
  6. FLUOXETINE [Suspect]
     Indication: MAJOR DEPRESSION
     Dosage: 20-40 MG/DAY
     Dates: start: 19990401, end: 20070401
  7. TRAZODONE HCL [Suspect]
     Indication: MAJOR DEPRESSION
     Dosage: 50-125 MG/DAY
     Dates: start: 19990401, end: 20070401
  8. DULOXETINE [Suspect]
     Indication: MAJOR DEPRESSION
     Dosage: 30-60 MG/DAY
     Dates: start: 20070401

REACTIONS (2)
  - DYSTONIA [None]
  - TARDIVE DYSKINESIA [None]
